FAERS Safety Report 6092681-4 (Version None)
Quarter: 2009Q1

REPORT INFORMATION
  Report Type: 
  Country: None (occurrence: None)
  Receive Date: 20090223
  Receipt Date: 20090223
  Transmission Date: 20090719
  Serious: Yes (Other)
  Sender: FDA-Public Use
  Company Number: None

PATIENT
  Sex: Female
  Weight: 68.9467 kg

DRUGS (1)
  1. LOVASTATIN [Suspect]
     Indication: HYPERLIPIDAEMIA
     Dosage: 40MG AT BEDTIME PO
     Route: 048
     Dates: start: 20040101, end: 20070319

REACTIONS (1)
  - GASTROOESOPHAGEAL REFLUX DISEASE [None]
